FAERS Safety Report 18574044 (Version 1)
Quarter: 2020Q4

REPORT INFORMATION
  Report Type: Spontaneous
  Country: US (occurrence: US)
  Receive Date: 20201202
  Receipt Date: 20201202
  Transmission Date: 20210114
  Serious: No
  Sender: FDA-Public Use
  Company Number: None

PATIENT
  Age: 53 Year
  Sex: Male

DRUGS (1)
  1. ERENUMAB-AOOE (ERENUMAB-AOOE 140MG/ML AUTOINJECTOR, 1ML) [Suspect]
     Active Substance: ERENUMAB-AOOE
     Indication: MIGRAINE
     Dosage: ?          OTHER FREQUENCY:UNKNOWN;?
     Route: 058
     Dates: start: 20200411, end: 20200919

REACTIONS (5)
  - Therapeutic product effect incomplete [None]
  - Hallucination [None]
  - Dizziness [None]
  - Fall [None]
  - Therapy change [None]

NARRATIVE: CASE EVENT DATE: 20200919
